FAERS Safety Report 9144075 (Version 2)
Quarter: 2014Q3

REPORT INFORMATION
  Report Type: Spontaneous
  Country: US (occurrence: US)
  Receive Date: 20130306
  Receipt Date: 20140801
  Transmission Date: 20150326
  Serious: Yes (Hospitalization)
  Sender: FDA-Public Use
  Company Number: US-GLAXOSMITHKLINE-A1014664A

PATIENT
  Age: 48 Year
  Sex: Male

DRUGS (3)
  1. ADVAIR HFA [Suspect]
     Active Substance: FLUTICASONE PROPIONATE\SALMETEROL XINAFOATE
     Indication: ASTHMA
     Route: 055
  2. VENTOLIN HFA [Suspect]
     Active Substance: ALBUTEROL SULFATE
     Indication: ASTHMA
     Dosage: 90MCG UNKNOWN
     Route: 055
  3. SINGULAIR [Concomitant]
     Active Substance: MONTELUKAST SODIUM

REACTIONS (5)
  - Implantable defibrillator insertion [Unknown]
  - Chest pain [Recovered/Resolved with Sequelae]
  - Cardiac operation [Recovered/Resolved with Sequelae]
  - Internal fixation of fracture [Unknown]
  - Back pain [Unknown]

NARRATIVE: CASE EVENT DATE: 2012
